FAERS Safety Report 7985456-X (Version None)
Quarter: 2011Q4

REPORT INFORMATION
  Report Type: 
  Country: None (occurrence: None)
  Receive Date: 20111216
  Receipt Date: 20111214
  Transmission Date: 20120403
  Serious: Yes (Other)
  Sender: FDA-Public Use
  Company Number: JP-ROCHE-744140

PATIENT
  Age: 65 Year
  Sex: Female

DRUGS (5)
  1. FLUOROURACIL [Concomitant]
     Indication: COLON CANCER METASTATIC
     Route: 041
     Dates: start: 20090201, end: 20090601
  2. FLUOROURACIL [Concomitant]
     Route: 040
  3. OXALIPLATIN [Concomitant]
     Indication: COLON CANCER METASTATIC
     Route: 041
     Dates: start: 20090201, end: 20090601
  4. LEVOLEUCOVORIN CALCIUM [Concomitant]
     Indication: COLON CANCER METASTATIC
     Route: 041
     Dates: start: 20090201, end: 20090601
  5. AVASTIN [Suspect]
     Indication: COLON CANCER METASTATIC
     Dosage: ACTION TAKEN: DISCONTINUED
     Route: 041
     Dates: start: 20090201, end: 20090601

REACTIONS (3)
  - SKIN ULCER HAEMORRHAGE [None]
  - POST PROCEDURAL COMPLICATION [None]
  - MICROANGIOPATHY [None]
